FAERS Safety Report 14728054 (Version 7)
Quarter: 2019Q1

REPORT INFORMATION
  Report Type: Report from Study
  Country: US (occurrence: US)
  Receive Date: 20180406
  Receipt Date: 20190307
  Transmission Date: 20190417
  Serious: Yes (Death, Hospitalization, Other)
  Sender: FDA-Public Use
  Company Number: US-JNJFOC-20180405558

PATIENT
  Age: 66 Year
  Sex: Female
  Weight: 61 kg

DRUGS (3)
  1. IBRUTINIB [Suspect]
     Active Substance: IBRUTINIB
     Indication: CHRONIC LYMPHOCYTIC LEUKAEMIA
     Dosage: START PERIOD 1325 DAYS
     Route: 048
     Dates: start: 20180621
  2. IBRUTINIB [Suspect]
     Active Substance: IBRUTINIB
     Indication: CHRONIC LYMPHOCYTIC LEUKAEMIA
     Dosage: START PERIOD:1325 DAYS
     Route: 048
     Dates: start: 20150212, end: 20171229
  3. IBRUTINIB [Suspect]
     Active Substance: IBRUTINIB
     Indication: CHRONIC LYMPHOCYTIC LEUKAEMIA
     Dosage: START DAYS 1325 DAYS
     Route: 048
     Dates: start: 20180907

REACTIONS (12)
  - Blood alkaline phosphatase increased [Recovered/Resolved]
  - Malaise [Unknown]
  - Death [Fatal]
  - Failure to thrive [Unknown]
  - Gastric haemorrhage [Recovering/Resolving]
  - Anaemia [Recovered/Resolved]
  - White blood cell count decreased [Recovered/Resolved]
  - Hypophosphataemia [Recovered/Resolved]
  - Aspartate aminotransferase increased [Recovered/Resolved]
  - Anaemia [Unknown]
  - Lymphocyte count decreased [Not Recovered/Not Resolved]
  - Urinary tract infection [Recovered/Resolved]

NARRATIVE: CASE EVENT DATE: 20171226
